FAERS Safety Report 24753180 (Version 1)
Quarter: 2024Q4

REPORT INFORMATION
  Report Type: Spontaneous
  Country: US (occurrence: US)
  Receive Date: 20241219
  Receipt Date: 20241219
  Transmission Date: 20250114
  Serious: No
  Sender: LUPIN
  Company Number: US-LUPIN PHARMACEUTICALS INC.-2024-12137

PATIENT

DRUGS (1)
  1. BUDESONIDE [Suspect]
     Active Substance: BUDESONIDE
     Indication: Sinus disorder
     Dosage: UNK, BID, 1 AMPULE TWICE DAILY

REACTIONS (3)
  - Product prescribing issue [Unknown]
  - Product use in unapproved indication [Unknown]
  - No adverse event [Unknown]
